FAERS Safety Report 14900803 (Version 2)
Quarter: 2018Q2

REPORT INFORMATION
  Report Type: Spontaneous
  Country: JP (occurrence: JP)
  Receive Date: 20180516
  Receipt Date: 20180529
  Transmission Date: 20180711
  Serious: Yes (Death, Other)
  Sender: FDA-Public Use
  Company Number: JP-ASTRAZENECA-2018SE63294

PATIENT
  Age: 47 Year
  Sex: Male
  Weight: 77 kg

DRUGS (8)
  1. FORXIGA [Suspect]
     Active Substance: DAPAGLIFLOZIN
     Indication: TYPE 2 DIABETES MELLITUS
     Route: 048
     Dates: start: 20170921, end: 20180410
  2. ONGLYZA [Concomitant]
     Active Substance: SAXAGLIPTIN HYDROCHLORIDE
     Indication: TYPE 2 DIABETES MELLITUS
     Route: 048
     Dates: start: 20171101, end: 20180410
  3. DERMOVATE [Concomitant]
     Active Substance: CLOBETASOL
     Dosage: DOSE UNKNOWN, TWO TIMES A DAY
     Route: 003
  4. ATARAX [Concomitant]
     Active Substance: HYDROXYZINE HYDROCHLORIDE
     Route: 048
  5. HEPARINOID [Concomitant]
     Active Substance: CHONDROITIN SULFATE (BOVINE)
     Dosage: DOSE UNKNOWN, TWO TIMES A DAY
     Route: 003
  6. OLMESARTAN [Concomitant]
     Active Substance: OLMESARTAN
     Indication: HYPERTENSION
     Route: 048
     Dates: start: 20170921, end: 20180410
  7. AZUNOL [Concomitant]
     Active Substance: SODIUM GUALENATE
     Dosage: DOSE UNKNOWN, TWO TIMES A DAY
     Route: 003
  8. BILASTINE [Concomitant]
     Active Substance: BILASTINE
     Route: 048

REACTIONS (5)
  - Acute myocardial infarction [Fatal]
  - Dehydration [Fatal]
  - Myocardial ischaemia [Unknown]
  - Coronary artery stenosis [Unknown]
  - Hyperglycaemia [Fatal]

NARRATIVE: CASE EVENT DATE: 20180506
